FAERS Safety Report 8501040-3 (Version None)
Quarter: 2012Q3

REPORT INFORMATION
  Report Type: 
  Country: None (occurrence: None)
  Receive Date: 20120710
  Receipt Date: 20120702
  Transmission Date: 20120928
  Serious: Yes (Other)
  Sender: FDA-Public Use
  Company Number: JP-VERTEX PHARMACEUTICALS INC.-AE-2012-005500

PATIENT
  Age: 50 Year
  Sex: Male

DRUGS (20)
  1. TELAVIC (TELAPREVIR) [Suspect]
     Indication: HEPATITIS C
     Route: 048
     Dates: start: 20120105
  2. PEGINTERFERON ALFA-2B [Concomitant]
     Indication: HEPATITIS C
     Route: 051
     Dates: start: 20120105, end: 20120302
  3. MUCOSTA [Concomitant]
     Route: 048
     Dates: start: 20120116
  4. BETAMETHASONE [Concomitant]
     Route: 061
     Dates: start: 20120110
  5. MUCOSTA [Concomitant]
     Route: 048
     Dates: start: 20120113, end: 20120119
  6. PEGINTERFERON ALFA-2B [Concomitant]
     Route: 051
     Dates: start: 20120309, end: 20120620
  7. EPINASTINE HYDROCHLORIDE [Concomitant]
     Route: 048
     Dates: start: 20120116
  8. POLARAMINE [Concomitant]
     Route: 048
     Dates: start: 20120116, end: 20120119
  9. RIBAVIRIN [Concomitant]
     Route: 048
     Dates: start: 20120309, end: 20120524
  10. CLOBETASOL PROPIONATE [Concomitant]
     Route: 061
     Dates: start: 20120112
  11. ATARAX [Concomitant]
     Route: 048
     Dates: start: 20120112
  12. EPINASTINE HYDROCHLORIDE [Concomitant]
     Route: 048
     Dates: start: 20120112
  13. MYSER 0..5% [Concomitant]
     Route: 061
     Dates: start: 20120110
  14. PREDNISOLONE [Concomitant]
     Route: 048
     Dates: start: 20120116
  15. RIBAVIRIN [Concomitant]
     Indication: HEPATITIS C
     Route: 048
     Dates: start: 20120105, end: 20120223
  16. RIBAVIRIN [Concomitant]
     Route: 048
     Dates: start: 20120224, end: 20120308
  17. EPINASTINE HYDROCHLORIDE [Concomitant]
     Route: 048
     Dates: start: 20120110
  18. RIBAVIRIN [Concomitant]
     Route: 048
     Dates: start: 20120525, end: 20120620
  19. EPINASTINE HYDROCHLORIDE [Concomitant]
     Route: 048
     Dates: start: 20120213
  20. PREDNISOLONE [Concomitant]
     Route: 048
     Dates: start: 20120113

REACTIONS (2)
  - INTRAOCULAR PRESSURE INCREASED [None]
  - HAEMOGLOBIN DECREASED [None]
